FAERS Safety Report 14972039 (Version 2)
Quarter: 2018Q2

REPORT INFORMATION
  Report Type: Spontaneous
  Country: US (occurrence: US)
  Receive Date: 20180605
  Receipt Date: 20180608
  Transmission Date: 20180711
  Serious: No
  Sender: FDA-Public Use
  Company Number: US-IPSEN BIOPHARMACEUTICALS, INC.-2018-06907

PATIENT
  Age: 71 Year
  Sex: Female

DRUGS (17)
  1. XERMELO [Suspect]
     Active Substance: TELOTRISTAT ETHYL
     Indication: CARCINOID TUMOUR
     Route: 048
     Dates: start: 20170511, end: 2018
  2. XERMELO [Suspect]
     Active Substance: TELOTRISTAT ETHYL
     Dosage: TWO TIMES PER DAY OR THREE TIMES PER DAY, DEPENDING ON SYMPTOMS
     Route: 048
     Dates: start: 2018, end: 2018
  3. SYNTHROID [Concomitant]
     Active Substance: LEVOTHYROXINE SODIUM
  4. HYDROCHLOROTHIAZIDE. [Concomitant]
     Active Substance: HYDROCHLOROTHIAZIDE
  5. SUTENT [Concomitant]
     Active Substance: SUNITINIB MALATE
  6. FERROUS SULFATE. [Concomitant]
     Active Substance: FERROUS SULFATE
  7. POTASSIUM [Concomitant]
     Active Substance: POTASSIUM
  8. LOPERAMIDE [Concomitant]
     Active Substance: LOPERAMIDE
  9. TOPAMAX [Concomitant]
     Active Substance: TOPIRAMATE
  10. CBD HEMP OIL [Concomitant]
     Indication: INSOMNIA
  11. CITALOPRAM [Concomitant]
     Active Substance: CITALOPRAM HYDROBROMIDE
  12. GINGKO [Concomitant]
     Active Substance: GINKGO
  13. METOPROLOL. [Concomitant]
     Active Substance: METOPROLOL
  14. LOW DOSE ASPIRIN [Concomitant]
     Active Substance: ASPIRIN
  15. SANDOSTATIN [Concomitant]
     Active Substance: OCTREOTIDE ACETATE
  16. XERMELO [Suspect]
     Active Substance: TELOTRISTAT ETHYL
     Route: 048
     Dates: start: 2018
  17. SOMATULINE [Suspect]
     Active Substance: LANREOTIDE ACETATE
     Indication: PRODUCT USED FOR UNKNOWN INDICATION
     Dosage: NOT REPORTED
     Route: 065

REACTIONS (2)
  - Diverticulum [Recovered/Resolved]
  - Seasonal allergy [Not Recovered/Not Resolved]

NARRATIVE: CASE EVENT DATE: 201803
